FAERS Safety Report 7481844-9 (Version None)
Quarter: 2011Q2

REPORT INFORMATION
  Report Type: 
  Country: None (occurrence: None)
  Receive Date: 20110516
  Receipt Date: 20110509
  Transmission Date: 20111010
  Serious: Yes (Hospitalization)
  Sender: FDA-Public Use
  Company Number: US-ABBOTT-11P-163-0724692-00

PATIENT
  Sex: Female
  Weight: 120.31 kg

DRUGS (1)
  1. HUMIRA [Suspect]
     Indication: PSORIASIS
     Dates: start: 20110301

REACTIONS (14)
  - FATIGUE [None]
  - SKIN WARM [None]
  - DYSSTASIA [None]
  - ABSCESS LIMB [None]
  - HYPERSOMNIA [None]
  - CELLULITIS [None]
  - OEDEMA PERIPHERAL [None]
  - ASTHENIA [None]
  - PAIN IN EXTREMITY [None]
  - STAPHYLOCOCCAL INFECTION [None]
  - PYREXIA [None]
  - ARTHRALGIA [None]
  - ERYTHEMA [None]
  - MUSCULOSKELETAL STIFFNESS [None]
